FAERS Safety Report 18272798 (Version 2)
Quarter: 2020Q4

REPORT INFORMATION
  Report Type: Report from Study
  Country: HU (occurrence: HU)
  Receive Date: 20200916
  Receipt Date: 20201005
  Transmission Date: 20210113
  Serious: Yes (Hospitalization, Other)
  Sender: FDA-Public Use
  Company Number: HU-MYLANLABS-2020M1078155

PATIENT
  Age: 51 Year
  Sex: Male
  Weight: 77.2 kg

DRUGS (7)
  1. AMINOPHENAZONE [Suspect]
     Active Substance: AMINOPHENAZONE
     Indication: JAW FRACTURE
  2. AMINOPHENAZONE [Suspect]
     Active Substance: AMINOPHENAZONE
     Indication: FACIAL BONES FRACTURE
     Dosage: UNK
     Route: 048
     Dates: start: 20200802
  3. CIPRALEX [Concomitant]
     Active Substance: ESCITALOPRAM OXALATE
     Dosage: UNK
     Dates: start: 20190923
  4. CIPRALEX [Concomitant]
     Active Substance: ESCITALOPRAM OXALATE
     Dosage: UNK
     Dates: start: 20190927
  5. AMOXICILLIN/CLAVULANIC ACID [Suspect]
     Active Substance: AMOXICILLIN\CLAVULANIC ACID
     Indication: FACIAL BONES FRACTURE
  6. AMOXICILLIN/CLAVULANIC ACID [Suspect]
     Active Substance: AMOXICILLIN\CLAVULANIC ACID
     Indication: JAW FRACTURE
     Dosage: UNK
     Route: 048
     Dates: start: 20200802
  7. EMTRICITABINE/TENOFOVIR DISOPROXIL FUMARATE [Suspect]
     Active Substance: EMTRICITABINE\TENOFOVIR DISOPROXIL FUMARATE
     Indication: PROPHYLAXIS AGAINST HIV INFECTION
     Dosage: 1 DF, QD
     Route: 048
     Dates: start: 20190913

REACTIONS (1)
  - Facial bones fracture [Recovering/Resolving]

NARRATIVE: CASE EVENT DATE: 20200802
